FAERS Safety Report 22642132 (Version 1)
Quarter: 2023Q2

REPORT INFORMATION
  Report Type: Spontaneous
  Country: US (occurrence: None)
  Receive Date: 20230623
  Receipt Date: 20230623
  Transmission Date: 20230721
  Serious: Yes (Hospitalization)
  Sender: FDA-Public Use
  Company Number: None

PATIENT
  Sex: Female

DRUGS (24)
  1. LENALIDOMIDE [Suspect]
     Active Substance: LENALIDOMIDE
     Indication: Plasma cell myeloma
     Dosage: FREQUENCY : DAILY;?
     Route: 048
     Dates: start: 20230525
  2. ACYCLOVIR [Concomitant]
     Active Substance: ACYCLOVIR
  3. AMMONIUM LAC CRE [Concomitant]
  4. ASPIRIN LOW 81MG [Concomitant]
  5. ATORVASTATIN [Concomitant]
     Active Substance: ATORVASTATIN
  6. CETIRIZINE [Concomitant]
     Active Substance: CETIRIZINE HYDROCHLORIDE
  7. DARZALEX SOL [Concomitant]
  8. DEXAMETHASONE [Concomitant]
     Active Substance: DEXAMETHASONE
  9. FAMOTIDINE [Concomitant]
     Active Substance: FAMOTIDINE
  10. FLUOCINACET OIL SCALP [Concomitant]
  11. GABAPENTIN [Concomitant]
     Active Substance: GABAPENTIN
  12. ACETAMINOPHEN\HYDROCODONE [Concomitant]
     Active Substance: ACETAMINOPHEN\HYDROCODONE
  13. HYDROCORT LOT [Concomitant]
  14. LEVOTHYROXIN [Concomitant]
  15. METFORMIN [Concomitant]
     Active Substance: METFORMIN HYDROCHLORIDE
  16. NEXIUM [Concomitant]
     Active Substance: ESOMEPRAZOLE MAGNESIUM
  17. NIFEDIPINE [Concomitant]
     Active Substance: NIFEDIPINE
  18. OZEMPIC [Concomitant]
     Active Substance: SEMAGLUTIDE
  19. PEG-3350/KCL SOD/SODIUM [Concomitant]
  20. REVLIMID [Concomitant]
     Active Substance: LENALIDOMIDE
  21. VELCADE INJ [Concomitant]
  22. VITAMIN B12 [Concomitant]
     Active Substance: CYANOCOBALAMIN
  23. VITAMIN D [Concomitant]
     Active Substance: VITAMIN D NOS
  24. ZYRTEC ALLGY [Concomitant]

REACTIONS (1)
  - Hospitalisation [None]
